FAERS Safety Report 9320326 (Version 2)
Quarter: 2013Q2

REPORT INFORMATION
  Report Type: Spontaneous
  Country: DE (occurrence: DE)
  Receive Date: 20130530
  Receipt Date: 20130624
  Transmission Date: 20140414
  Serious: Yes (Death, Other)
  Sender: FDA-Public Use
  Company Number: DE-ALEXION PHARMACEUTICALS INC.-A201301174

PATIENT
  Age: 11 Year
  Sex: Female

DRUGS (2)
  1. SOLIRIS 300MG [Suspect]
     Indication: HAEMOLYTIC URAEMIC SYNDROME
     Dosage: 400 MG, UNK
     Route: 042
     Dates: start: 20110930, end: 201210
  2. SOLIRIS 300MG [Suspect]
     Dosage: 900 MG, UNK
     Route: 042
     Dates: start: 20121022

REACTIONS (3)
  - Death [Fatal]
  - Acute lymphocytic leukaemia [Unknown]
  - Condition aggravated [Unknown]
